FAERS Safety Report 10065039 (Version 3)
Quarter: 2015Q2

REPORT INFORMATION
  Report Type: Spontaneous
  Country: US (occurrence: US)
  Receive Date: 20140408
  Receipt Date: 20150527
  Transmission Date: 20150821
  Serious: Yes (Death, Life-Threatening, Hospitalization, Other)
  Sender: FDA-Public Use
  Company Number: US-009507513-1404USA003950

PATIENT
  Sex: Female
  Weight: 72.56 kg

DRUGS (1)
  1. JANUVIA [Suspect]
     Active Substance: SITAGLIPTIN PHOSPHATE
     Indication: TYPE 2 DIABETES MELLITUS
     Dosage: 100 MG, QD
     Route: 048
     Dates: start: 20070327, end: 20121002

REACTIONS (18)
  - Metastases to lung [Unknown]
  - Electrocardiogram ST-T change [Unknown]
  - Urinary tract infection [Unknown]
  - Deep vein thrombosis [Unknown]
  - Femoral neck fracture [Unknown]
  - Tricuspid valve incompetence [Unknown]
  - Ventricular extrasystoles [Unknown]
  - Pancreatic carcinoma metastatic [Fatal]
  - Metastases to liver [Unknown]
  - Embolism venous [Unknown]
  - Chronic kidney disease [Not Recovered/Not Resolved]
  - Uterine leiomyoma [Unknown]
  - Dementia [Unknown]
  - Joint destruction [Unknown]
  - Bone formation increased [Unknown]
  - Mitral valve incompetence [Unknown]
  - Bone erosion [Unknown]
  - Lung infiltration [Unknown]

NARRATIVE: CASE EVENT DATE: 20120923
